FAERS Safety Report 5162951-2 (Version None)
Quarter: 2006Q4

REPORT INFORMATION
  Report Type: 
  Country: None (occurrence: None)
  Receive Date: 20061201
  Receipt Date: 20061120
  Transmission Date: 20070319
  Serious: Yes (Death)
  Sender: FDA-Public Use
  Company Number: JP-BRISTOL-MYERS SQUIBB COMPANY-13593926

PATIENT
  Age: 47 Year
  Sex: Male

DRUGS (6)
  1. ARIPIPRAZOLE [Suspect]
     Indication: SCHIZOPHRENIA
     Route: 048
     Dates: start: 20060919, end: 20061116
  2. HALOPERIDOL [Concomitant]
     Dates: start: 20060918, end: 20061116
  3. DIAZEPAM [Concomitant]
     Dates: start: 20060918, end: 20061116
  4. BIPERIDEN HYDROCHLORIDE TAB [Concomitant]
     Dates: start: 20060918, end: 20061116
  5. BROMAZEPAM [Concomitant]
     Route: 048
     Dates: start: 20060918, end: 20061116
  6. CHLORPROMAZINE [Concomitant]
     Dates: start: 20060918, end: 20061116

REACTIONS (1)
  - SUDDEN DEATH [None]
